FAERS Safety Report 7337856-9 (Version None)
Quarter: 2011Q1

REPORT INFORMATION
  Report Type: 
  Country: None (occurrence: None)
  Receive Date: 20110308
  Receipt Date: 20110224
  Transmission Date: 20110831
  Serious: Yes (Death, Hospitalization, Other)
  Sender: FDA-Public Use
  Company Number: JP-MPIJNJ-2010-01705

PATIENT

DRUGS (19)
  1. MELPHALAN [Concomitant]
     Dosage: UNK
     Dates: start: 20090610, end: 20091025
  2. MAGNESIUM OXIDE [Concomitant]
     Indication: CONSTIPATION
     Dosage: 2 G, UNK
     Route: 048
     Dates: start: 20090610
  3. MUCOSTA [Concomitant]
     Indication: GASTRIC ULCER HAEMORRHAGE
     Dosage: 300 MG, UNK
     Route: 048
     Dates: start: 20090610
  4. BAKTAR [Concomitant]
     Indication: ANTIFUNGAL PROPHYLAXIS
     Dosage: 2 DF, UNK
     Route: 048
     Dates: start: 20090610
  5. PARIET [Concomitant]
     Indication: GASTRIC ULCER HAEMORRHAGE
     Dosage: 20 MG, UNK
     Route: 048
     Dates: start: 20090806
  6. DUROTEP [Concomitant]
     Indication: PAIN
     Dosage: 25 UNK, UNK
     Route: 062
     Dates: start: 20090812, end: 20091012
  7. OXYCONTIN [Concomitant]
     Indication: PAIN
     Dosage: 20 MG, UNK
     Route: 048
     Dates: start: 20091102
  8. MICARDIS [Concomitant]
     Indication: HYPERTENSION
     Dosage: 40 MG, UNK
     Route: 048
     Dates: start: 20091116
  9. VELCADE [Suspect]
     Indication: MULTIPLE MYELOMA
     Dosage: 2.2 MG, UNK
     Route: 042
     Dates: start: 20090910, end: 20100225
  10. MIGLITOL [Concomitant]
     Indication: DIABETES MELLITUS
     Dosage: 150 MG, UNK
     Route: 048
     Dates: start: 20091022
  11. PREDNISOLONE [Concomitant]
     Dosage: UNK
     Dates: start: 20090610, end: 20091025
  12. DIFLUCAN [Concomitant]
     Indication: ANTIFUNGAL PROPHYLAXIS
     Dosage: 200 MG, UNK
     Route: 048
     Dates: start: 20090610, end: 20090916
  13. NORVASC [Concomitant]
     Indication: HYPERTENSION
     Dosage: 5 MG, UNK
     Dates: start: 20100610
  14. AMARYL [Concomitant]
     Indication: DIABETES MELLITUS
     Dosage: 1 MG, UNK
     Route: 048
     Dates: start: 20091102
  15. DEXAMETHASONE [Concomitant]
     Dosage: UNK
     Dates: start: 20090610, end: 20091025
  16. CYTOTEC [Concomitant]
     Indication: GASTRIC ULCER HAEMORRHAGE
     Dosage: 800 UG, UNK
     Route: 048
     Dates: start: 20090806, end: 20091101
  17. VELCADE [Suspect]
     Dosage: 2.0 UNK, UNK
     Route: 042
     Dates: start: 20100319, end: 20100610
  18. ZOMETA [Concomitant]
     Indication: MULTIPLE MYELOMA
     Dosage: 4 MG, UNK
     Route: 042
     Dates: start: 20090610
  19. AMOBAN [Concomitant]
     Indication: INSOMNIA
     Dosage: 7.5 MG, UNK
     Route: 048
     Dates: start: 20091017

REACTIONS (5)
  - DISEASE PROGRESSION [None]
  - WEIGHT DECREASED [None]
  - DECREASED APPETITE [None]
  - FEBRILE NEUTROPENIA [None]
  - TUMOUR LYSIS SYNDROME [None]
